FAERS Safety Report 11783309 (Version 8)
Quarter: 2018Q2

REPORT INFORMATION
  Report Type: Report from Study
  Country: BR (occurrence: BR)
  Receive Date: 20151127
  Receipt Date: 20180623
  Transmission Date: 20180711
  Serious: Yes (Other)
  Sender: FDA-Public Use
  Company Number: PHHY2015BR079205

PATIENT
  Sex: Female
  Weight: 61 kg

DRUGS (10)
  1. SANDOSTATIN LAR DEPOT [Suspect]
     Active Substance: OCTREOTIDE ACETATE
     Indication: ACROMEGALY
     Dosage: 10 MG, QMO
     Route: 030
     Dates: start: 2006
  2. SANDOSTATIN LAR DEPOT [Suspect]
     Active Substance: OCTREOTIDE ACETATE
     Dosage: 20 MG, QMO
     Route: 030
     Dates: start: 2006
  3. SANDOSTATIN LAR DEPOT [Suspect]
     Active Substance: OCTREOTIDE ACETATE
     Dosage: 30 MG (3 AMPOULES OF 10 MG), UNK
     Route: 030
     Dates: start: 2008, end: 2015
  4. LOSARTAN. [Concomitant]
     Active Substance: LOSARTAN
     Indication: HYPERTENSION
     Dosage: 2 DF, QD
     Route: 048
     Dates: start: 2004
  5. SANDOSTATIN LAR DEPOT [Suspect]
     Active Substance: OCTREOTIDE ACETATE
     Dosage: 20 MG, QMO
     Route: 030
     Dates: start: 201506
  6. SANDOSTATIN LAR DEPOT [Suspect]
     Active Substance: OCTREOTIDE ACETATE
     Dosage: 20 MG, (EVERY 45 DAYS)
     Route: 030
  7. AMLODIPINE [Concomitant]
     Active Substance: AMLODIPINE BESYLATE
     Indication: HYPERTENSION
     Dosage: 1 DF, QHS
     Route: 048
  8. OSTEOBAN [Concomitant]
     Indication: ARTHRALGIA
     Dosage: 1 DF, QD
     Route: 048
  9. LORATADIN [Concomitant]
     Active Substance: LORATADINE
     Indication: HYPERSENSITIVITY
     Dosage: 2 DF, QD
     Route: 048
     Dates: start: 2016
  10. SIMVASTATIN. [Concomitant]
     Active Substance: SIMVASTATIN
     Indication: BLOOD CHOLESTEROL INCREASED
     Dosage: 1 DF, QD
     Route: 048

REACTIONS (26)
  - Injection site erythema [Recovering/Resolving]
  - Headache [Recovering/Resolving]
  - Mood altered [Unknown]
  - Influenza [Unknown]
  - Injection site pain [Recovering/Resolving]
  - Inappropriate schedule of drug administration [Unknown]
  - Drug ineffective [Unknown]
  - Body height decreased [Recovering/Resolving]
  - Pain [Recovered/Resolved]
  - Insulin-like growth factor increased [Unknown]
  - Hepatotoxicity [Unknown]
  - Weight fluctuation [Recovering/Resolving]
  - Visual impairment [Recovering/Resolving]
  - Erythema [Recovering/Resolving]
  - Hypertension [Recovering/Resolving]
  - Confusional state [Unknown]
  - Blood cholesterol increased [Recovering/Resolving]
  - Hypothyroidism [Unknown]
  - Diabetes mellitus [Recovering/Resolving]
  - Blood growth hormone abnormal [Unknown]
  - Pruritus [Recovering/Resolving]
  - Memory impairment [Recovering/Resolving]
  - Pyrexia [Recovered/Resolved]
  - Headache [Recovered/Resolved]
  - Pyrexia [Recovering/Resolving]
  - Dizziness [Not Recovered/Not Resolved]
